FAERS Safety Report 10482144 (Version 1)
Quarter: 2014Q3

REPORT INFORMATION
  Report Type: Spontaneous
  Country: CZ (occurrence: CZ)
  Receive Date: 20140929
  Receipt Date: 20140929
  Transmission Date: 20150326
  Serious: Yes (Life-Threatening, Hospitalization, Other)
  Sender: FDA-Public Use
  Company Number: CZ-TEVA-511036ISR

PATIENT
  Age: 56 Year
  Sex: Male

DRUGS (1)
  1. OXALIPLATIN-TEVA 5 MG/ML, KONCENTR?T PRO INFUZN? ROZ [Suspect]
     Active Substance: OXALIPLATIN
     Indication: GASTRIC CANCER
     Dosage: .3571 MG/ML DAILY;
     Route: 041
     Dates: start: 20140909, end: 20140909

REACTIONS (4)
  - Heart rate increased [Recovered/Resolved]
  - Hypersensitivity [Recovered/Resolved]
  - Cyanosis [Recovered/Resolved]
  - Chills [Recovered/Resolved]

NARRATIVE: CASE EVENT DATE: 20140909
